FAERS Safety Report 9696743 (Version 1)
Quarter: 2013Q4

REPORT INFORMATION
  Report Type: Spontaneous
  Country: US (occurrence: US)
  Receive Date: 20131119
  Receipt Date: 20131119
  Transmission Date: 20140711
  Serious: Yes (Other)
  Sender: FDA-Public Use
  Company Number: US-GILEAD-2007-0014490

PATIENT
  Age: 49 Year
  Sex: Female
  Weight: 142.88 kg

DRUGS (5)
  1. LETAIRIS [Suspect]
     Indication: PULMONARY ARTERIAL HYPERTENSION
     Route: 048
     Dates: start: 20070716
  2. LASIX [Concomitant]
     Indication: FLUID RETENTION
     Route: 048
  3. POTASSIUM CHLORIDE [Concomitant]
     Indication: SUPPLEMENTATION THERAPY
     Route: 048
  4. BENICAR [Concomitant]
     Indication: ESSENTIAL HYPERTENSION
     Route: 048
  5. ZYLOPRIM [Concomitant]
     Indication: GOUT
     Route: 048

REACTIONS (1)
  - Oedema peripheral [Not Recovered/Not Resolved]
